FAERS Safety Report 6924880-0 (Version None)
Quarter: 2010Q3

REPORT INFORMATION
  Report Type: 
  Country: None (occurrence: None)
  Receive Date: 20100816
  Receipt Date: 20100804
  Transmission Date: 20110219
  Serious: Yes (Hospitalization)
  Sender: FDA-Public Use
  Company Number: CA-CELGENEUS-028-C5013-10062327

PATIENT
  Sex: Female

DRUGS (38)
  1. THALIDOMIDE [Suspect]
     Indication: MULTIPLE MYELOMA
     Route: 048
     Dates: start: 20091112
  2. THALIDOMIDE [Suspect]
     Route: 048
     Dates: start: 20100521, end: 20100607
  3. PREDNISONE [Suspect]
     Indication: MULTIPLE MYELOMA
     Route: 065
     Dates: start: 20091112
  4. PREDNISONE [Suspect]
     Route: 065
     Dates: start: 20100521, end: 20100524
  5. MELPHALAN [Suspect]
     Indication: MULTIPLE MYELOMA
     Route: 065
     Dates: start: 20091112
  6. MELPHALAN [Suspect]
     Route: 065
     Dates: start: 20100521, end: 20100524
  7. PANTOPRAZOLE [Concomitant]
     Indication: PROPHYLAXIS
     Route: 048
     Dates: start: 20100603, end: 20100609
  8. PANTOPRAZOLE [Concomitant]
     Route: 048
     Dates: start: 20100611, end: 20100616
  9. PANTOPRAZOLE [Concomitant]
     Indication: FISTULA
     Route: 048
     Dates: start: 19980101
  10. CALCIUM [Concomitant]
     Indication: PRODUCT USED FOR UNKNOWN INDICATION
     Route: 048
     Dates: start: 20100603
  11. ALTACE [Concomitant]
     Indication: PRODUCT USED FOR UNKNOWN INDICATION
     Route: 065
  12. STATEX [Concomitant]
     Indication: PRODUCT USED FOR UNKNOWN INDICATION
     Route: 065
  13. ASPIRIN [Concomitant]
     Indication: PROPHYLAXIS
     Route: 048
     Dates: start: 20091112
  14. ACTONEL [Concomitant]
     Indication: OSTEOPOROSIS
     Route: 048
     Dates: start: 20091022
  15. RAMIPRIL [Concomitant]
     Indication: HYPERTENSION
     Route: 048
     Dates: start: 20091022
  16. METOCLOPRAMIDE [Concomitant]
     Indication: NAUSEA
     Route: 048
     Dates: start: 20091016
  17. METOCLOPRAMIDE [Concomitant]
     Route: 051
     Dates: start: 20100608, end: 20100609
  18. SYNTHROID [Concomitant]
     Indication: HYPOTHYROIDISM
     Route: 048
     Dates: start: 20070101
  19. SYNTHROID [Concomitant]
     Route: 048
     Dates: start: 20100624, end: 20100630
  20. DOCUSATE CALCIUM [Concomitant]
     Indication: CONSTIPATION
     Route: 048
     Dates: start: 20091015
  21. SENOKOT [Concomitant]
     Indication: CONSTIPATION
     Route: 048
     Dates: start: 20091015
  22. SENOKOT [Concomitant]
     Indication: CONSTIPATION PROPHYLAXIS
     Route: 048
     Dates: start: 20100606, end: 20100608
  23. CALCITONIN [Concomitant]
     Route: 045
     Dates: start: 20091015
  24. HYDROMORPHONE [Concomitant]
     Indication: BACK PAIN
     Route: 048
     Dates: start: 20091215
  25. HYDROMORP CONTIN [Concomitant]
     Indication: PRODUCT USED FOR UNKNOWN INDICATION
     Route: 048
  26. EPREX [Concomitant]
     Route: 058
     Dates: start: 20091112
  27. NEUPOGEN [Concomitant]
     Indication: NEUTROPENIA
     Route: 058
     Dates: start: 20100211, end: 20100608
  28. NEUPOGEN [Concomitant]
     Route: 058
     Dates: start: 20100617, end: 20100623
  29. NEUPOGEN [Concomitant]
     Route: 058
     Dates: start: 20100701
  30. LASIX [Concomitant]
     Dosage: 80MG, 40MG
     Route: 048
     Dates: start: 20091207
  31. LASIX [Concomitant]
     Indication: PROPHYLAXIS
     Route: 005
     Dates: start: 20100612, end: 20100612
  32. VENTOLIN [Concomitant]
     Indication: PRODUCT USED FOR UNKNOWN INDICATION
     Dosage: 2 PUFFS
     Route: 055
     Dates: start: 20100603, end: 20100706
  33. TORADOL [Concomitant]
     Indication: HEADACHE
     Route: 048
     Dates: start: 20100609, end: 20100617
  34. MAALOX [Concomitant]
     Indication: PROPHYLAXIS
     Route: 048
     Dates: start: 20100611, end: 20100611
  35. ZOFRAN [Concomitant]
     Indication: NAUSEA
     Route: 051
     Dates: start: 20100617, end: 20100623
  36. K-DUR [Concomitant]
     Route: 048
     Dates: start: 20100618, end: 20100623
  37. ALDACTONE [Concomitant]
     Route: 048
     Dates: start: 20100621, end: 20100623
  38. VITAMIN D [Concomitant]
     Indication: SUPPLEMENTATION THERAPY
     Dosage: 1000 UNITS
     Route: 048
     Dates: start: 20100708

REACTIONS (3)
  - ABDOMINAL WALL ABSCESS [None]
  - ENTEROCUTANEOUS FISTULA [None]
  - PNEUMONIA [None]
